FAERS Safety Report 7817211-5 (Version None)
Quarter: 2011Q4

REPORT INFORMATION
  Report Type: 
  Country: None (occurrence: None)
  Receive Date: 20111017
  Receipt Date: 20111010
  Transmission Date: 20120403
  Serious: Yes (Death, Hospitalization, Other)
  Sender: FDA-Public Use
  Company Number: PHHY2011BE82005

PATIENT
  Age: 36 Year
  Sex: Female

DRUGS (7)
  1. MOXIFLOXACIN [Concomitant]
     Dosage: UNK UKN, UNK
  2. ITRACONAZOLE [Concomitant]
  3. CYCLOSPORINE [Suspect]
     Indication: ACUTE GRAFT VERSUS HOST DISEASE
     Dosage: UNK UKN, UNK
  4. CORTICOSTEROIDS [Concomitant]
     Dosage: UNK UKN, UNK
  5. ACYCLOVIR [Concomitant]
     Dosage: UNK UKN, UNK
  6. SULFAMETHOXAZOLE AND TRIMETHOPRIM [Concomitant]
     Dosage: UNK UKN, UNK
  7. FLUCONAZOLE [Concomitant]
     Dosage: 400 MG, UNK

REACTIONS (25)
  - ASCITES [None]
  - EYE INFECTION FUNGAL [None]
  - UVEITIS [None]
  - CENTRAL NERVOUS SYSTEM LESION [None]
  - CARDIOPULMONARY FAILURE [None]
  - RETINAL INJURY [None]
  - RETINAL INFILTRATES [None]
  - CONFUSIONAL STATE [None]
  - ERYTHEMA [None]
  - HYPERTHYROIDISM [None]
  - PLEURAL EFFUSION [None]
  - BLINDNESS [None]
  - VITREOUS OPACITIES [None]
  - OEDEMA PERIPHERAL [None]
  - PULMONARY ALVEOLAR HAEMORRHAGE [None]
  - BRAIN ABSCESS [None]
  - RESPIRATORY DISORDER [None]
  - TACHYCARDIA [None]
  - PNEUMONIA BACTERIAL [None]
  - ASPERGILLOSIS [None]
  - LUNG INFILTRATION [None]
  - RESPIRATORY GAS EXCHANGE DISORDER [None]
  - CUSHINGOID [None]
  - PERICARDIAL EFFUSION [None]
  - COUGH [None]
